FAERS Safety Report 9865701 (Version 1)
Quarter: 2014Q1

REPORT INFORMATION
  Report Type: Spontaneous
  Country: US (occurrence: US)
  Receive Date: 20140203
  Receipt Date: 20140203
  Transmission Date: 20141002
  Serious: No
  Sender: FDA-Public Use
  Company Number: US-ALLERGAN-1307025US

PATIENT
  Age: 94 Year
  Sex: Female

DRUGS (6)
  1. RESTASIS [Suspect]
     Indication: DRY EYE
     Dosage: 1-2 DROPS, BID
     Route: 047
  2. ASPIRIN [Concomitant]
     Indication: CAROTID ARTERY DISEASE
     Dosage: 81 MG, UNK
     Route: 048
  3. SYNTHROID [Concomitant]
     Indication: HYPOTHYROIDISM
     Dosage: 0.025 MG, QD
     Route: 048
  4. VITAMIN E                          /00110501/ [Concomitant]
     Indication: SUPPLEMENTATION THERAPY
     Dosage: UNK
  5. MULTI VITAMIN [Concomitant]
     Indication: SUPPLEMENTATION THERAPY
     Dosage: UNK
  6. CALCIUM [Concomitant]
     Indication: OSTEOPOROSIS

REACTIONS (2)
  - Incorrect dose administered [Unknown]
  - Eye irritation [Unknown]
